FAERS Safety Report 5943043-9 (Version None)
Quarter: 2008Q4

REPORT INFORMATION
  Report Type: 
  Country: None (occurrence: None)
  Receive Date: 20081106
  Receipt Date: 20081031
  Transmission Date: 20090506
  Serious: Yes (Hospitalization)
  Sender: FDA-Public Use
  Company Number: NO-AVENTIS-200820356GDDC

PATIENT
  Age: 85 Year
  Sex: Female

DRUGS (9)
  1. METRONIDAZOLE [Suspect]
     Dosage: DOSE: UNK
  2. BURINEX [Suspect]
  3. SPIRIX [Suspect]
  4. ANTIHEMORRHOIDALS FOR TOPICAL USE [Concomitant]
     Dosage: DOSE: UNK
  5. NIFEREX                            /01214501/ [Concomitant]
  6. CETIRIZINE HCL [Concomitant]
  7. METOPROLOLE [Concomitant]
  8. RAMIPRIL [Concomitant]
  9. EPOETIN BETA [Concomitant]
     Dosage: DOSE: UNK

REACTIONS (1)
  - DEHYDRATION [None]
